FAERS Safety Report 8126854-3 (Version None)
Quarter: 2012Q1

REPORT INFORMATION
  Report Type: 
  Country: None (occurrence: None)
  Receive Date: 20120210
  Receipt Date: 20120207
  Transmission Date: 20120608
  Serious: No
  Sender: FDA-Public Use
  Company Number: US-PFIZER INC-K201101138

PATIENT
  Age: 41 Year
  Sex: Female

DRUGS (1)
  1. SKELAXIN [Suspect]
     Dosage: UNK
     Route: 048

REACTIONS (2)
  - SOMNOLENCE [None]
  - DRY MOUTH [None]
